FAERS Safety Report 4724267-5 (Version None)
Quarter: 2005Q3

REPORT INFORMATION
  Report Type: 
  Country: None (occurrence: None)
  Receive Date: 20050722
  Receipt Date: 20050712
  Transmission Date: 20060218
  Serious: Yes (Other)
  Sender: FDA-Public Use
  Company Number: 2005102462

PATIENT
  Sex: Male

DRUGS (4)
  1. VFEND [Suspect]
     Indication: ASPERGILLOSIS
     Dosage: 400 MG (200 MG, BID)
     Dates: start: 20050627, end: 20050704
  2. LASIX [Concomitant]
  3. XATRAL (ALFUZOSIN) [Concomitant]
  4. ACETYLCYSTEINE [Concomitant]

REACTIONS (2)
  - CHOLESTASIS [None]
  - HEPATIC NECROSIS [None]
